FAERS Safety Report 8973400 (Version 2)
Quarter: 2013Q1

REPORT INFORMATION
  Report Type: Report from Study
  Country: US (occurrence: US)
  Receive Date: 20121218
  Receipt Date: 20130118
  Transmission Date: 20140127
  Serious: Yes (Hospitalization)
  Sender: FDA-Public Use
  Company Number: US-ACTELION-A-US2012-76189

PATIENT
  Age: 47 Year
  Sex: Male

DRUGS (2)
  1. TRACLEER [Suspect]
     Indication: PULMONARY ARTERIAL HYPERTENSION
     Dosage: UNK
     Route: 048
  2. ADCIRCA [Concomitant]

REACTIONS (5)
  - Blood potassium decreased [Unknown]
  - Injury [Recovering/Resolving]
  - Cellulitis [Recovering/Resolving]
  - Embolism [Recovering/Resolving]
  - Thrombosis [None]
